FAERS Safety Report 23862503 (Version 2)
Quarter: 2024Q3

REPORT INFORMATION
  Report Type: Report from Study
  Country: US (occurrence: US)
  Receive Date: 20240516
  Receipt Date: 20240710
  Transmission Date: 20241017
  Serious: Yes (Hospitalization)
  Sender: MYLAN
  Company Number: US-MYLANLABS-2024M1043090

PATIENT
  Sex: Female

DRUGS (2)
  1. AMLODIPINE [Interacting]
     Active Substance: AMLODIPINE BESYLATE
     Indication: Hypertension
     Dosage: UNK
     Route: 065
  2. TUKYSA [Interacting]
     Active Substance: TUCATINIB
     Indication: Breast cancer female
     Dosage: UNK
     Route: 065

REACTIONS (17)
  - Bronchitis [Recovering/Resolving]
  - Blood magnesium decreased [Unknown]
  - Hypertension [Unknown]
  - Sleep disorder [Unknown]
  - Flank pain [Unknown]
  - Red blood cell count increased [Unknown]
  - Diarrhoea [Unknown]
  - Dysstasia [Unknown]
  - Muscle tightness [Unknown]
  - Abdominal distension [Unknown]
  - Peripheral swelling [Recovering/Resolving]
  - Malaise [Unknown]
  - Cough [Unknown]
  - Swelling [Recovering/Resolving]
  - Fatigue [Unknown]
  - Muscle spasms [Unknown]
  - Drug interaction [Unknown]
